FAERS Safety Report 12234240 (Version 10)
Quarter: 2019Q1

REPORT INFORMATION
  Report Type: Spontaneous
  Country: US (occurrence: US)
  Receive Date: 20160404
  Receipt Date: 20190204
  Transmission Date: 20190417
  Serious: Yes (Hospitalization)
  Sender: FDA-Public Use
  Company Number: US-PFIZER INC-2016169246

PATIENT
  Age: 71 Year
  Sex: Female

DRUGS (7)
  1. CARVEDILOL. [Concomitant]
     Active Substance: CARVEDILOL
     Dosage: UNK
     Dates: start: 2003
  2. ASPIRIN. [Concomitant]
     Active Substance: ASPIRIN
     Dosage: 81 MG, 2X/DAY
     Dates: start: 2009
  3. CARVEDILOL. [Concomitant]
     Active Substance: CARVEDILOL
     Dosage: 625 X2
     Dates: start: 2011
  4. ASPIRIN. [Concomitant]
     Active Substance: ASPIRIN
     Dosage: UNK
     Dates: start: 2015
  5. LYRICA [Suspect]
     Active Substance: PREGABALIN
     Dosage: 150 MG (75 MG X 2), UNK
     Dates: start: 201304
  6. SIMVASTATIN. [Concomitant]
     Active Substance: SIMVASTATIN
     Dosage: UNK
     Dates: start: 2003
  7. SIMVASTATIN. [Concomitant]
     Active Substance: SIMVASTATIN
     Dosage: 40 MG, 1X/DAY
     Dates: start: 2011

REACTIONS (8)
  - Dyspnoea [Unknown]
  - Nervousness [Recovered/Resolved]
  - Inappropriate schedule of product administration [Unknown]
  - Chills [Not Recovered/Not Resolved]
  - Malaise [Unknown]
  - Feeling abnormal [Recovered/Resolved]
  - Confusional state [Unknown]
  - Influenza [Unknown]

NARRATIVE: CASE EVENT DATE: 201304
